FAERS Safety Report 7096478-8 (Version None)
Quarter: 2010Q4

REPORT INFORMATION
  Report Type: 
  Country: None (occurrence: None)
  Receive Date: 20101111
  Receipt Date: 20101108
  Transmission Date: 20110411
  Serious: Yes (Other)
  Sender: FDA-Public Use
  Company Number: FR-EISAI INC.-E2090-01390-SPO-FR

PATIENT
  Age: 55 Year
  Sex: Female

DRUGS (6)
  1. ZONEGRAN [Suspect]
     Indication: EPILEPSY
     Route: 048
     Dates: start: 20101101, end: 20101101
  2. ZONEGRAN [Interacting]
     Route: 048
     Dates: start: 20101101
  3. AUGMENTIN '125' [Interacting]
     Indication: CYSTITIS
     Dosage: UNKNOWN
     Route: 048
     Dates: start: 20101101
  4. AUGMENTIN '125' [Interacting]
     Indication: URINARY TRACT INFECTION
  5. DEPAKENE [Concomitant]
     Indication: EPILEPSY
     Route: 048
     Dates: end: 20101101
  6. DEPAKENE [Concomitant]
     Dosage: UNKNOWN
     Route: 048
     Dates: start: 20101101

REACTIONS (2)
  - DRUG INTERACTION [None]
  - STATUS EPILEPTICUS [None]
